FAERS Safety Report 23820556 (Version 1)
Quarter: 2024Q2

REPORT INFORMATION
  Report Type: Spontaneous
  Country: US (occurrence: None)
  Receive Date: 20240503
  Receipt Date: 20240503
  Transmission Date: 20240716
  Serious: No
  Sender: FDA-Public Use
  Company Number: None

PATIENT
  Sex: 0

DRUGS (2)
  1. OXYBUTYNIN [Suspect]
     Active Substance: OXYBUTYNIN\OXYBUTYNIN CHLORIDE
  2. FESOTERODINE [Suspect]
     Active Substance: FESOTERODINE

REACTIONS (1)
  - Dry mouth [None]

NARRATIVE: CASE EVENT DATE: 20240503
